FAERS Safety Report 25537917 (Version 1)
Quarter: 2025Q3

REPORT INFORMATION
  Report Type: Spontaneous
  Country: CA (occurrence: CA)
  Receive Date: 20250710
  Receipt Date: 20250710
  Transmission Date: 20251021
  Serious: Yes (Other)
  Sender: SANOFI AVENTIS
  Company Number: CA-SA-2024SA378989

PATIENT
  Age: 72 Year
  Sex: Male
  Weight: 107 kg

DRUGS (3)
  1. INSULIN ASPART [Suspect]
     Active Substance: INSULIN ASPART
     Indication: Diabetes mellitus
     Dosage: 39 U, BEFORE MEALS BREAKFAST ADN LUNCH; 69U AT SUPPER
     Route: 051
     Dates: start: 20240123, end: 20240409
  2. INSULIN BEEF [Concomitant]
     Active Substance: INSULIN BEEF
  3. NOVORAPID [Concomitant]
     Active Substance: INSULIN ASPART

REACTIONS (9)
  - Diarrhoea [Recovered/Resolved]
  - Gastrointestinal pain [Recovered/Resolved]
  - Vision blurred [Recovered/Resolved]
  - Increased insulin requirement [Recovered/Resolved]
  - Nausea [Recovered/Resolved]
  - Headache [Recovered/Resolved]
  - Glycosylated haemoglobin increased [Recovered/Resolved]
  - Diabetes mellitus inadequate control [Recovered/Resolved]
  - Product substitution issue [Unknown]

NARRATIVE: CASE EVENT DATE: 20240123
